FAERS Safety Report 4353528-7 (Version None)
Quarter: 2004Q2

REPORT INFORMATION
  Report Type: 
  Country: None (occurrence: None)
  Receive Date: 20040430
  Receipt Date: 20040420
  Transmission Date: 20050107
  Serious: No
  Sender: FDA-Public Use
  Company Number: 2004SE02230

PATIENT
  Age: 65 Year
  Sex: Female
  Weight: 60 kg

DRUGS (3)
  1. NEXIUM [Suspect]
     Indication: GASTROOESOPHAGEAL REFLUX DISEASE
     Dosage: 40 MG DAILY PO
     Route: 048
     Dates: start: 20040416
  2. ACTIVELLE [Concomitant]
  3. CALTRATE [Concomitant]

REACTIONS (3)
  - FEELING ABNORMAL [None]
  - HUNGER [None]
  - INCREASED APPETITE [None]
